FAERS Safety Report 19548761 (Version 5)
Quarter: 2023Q1

REPORT INFORMATION
  Report Type: Report from Study
  Country: US (occurrence: None)
  Receive Date: 20210714
  Receipt Date: 20230321
  Transmission Date: 20230417
  Serious: Yes (Hospitalization)
  Sender: FDA-Public Use
  Company Number: US-ROCHE-2865074

PATIENT
  Age: 74 Year
  Sex: Male
  Weight: 75.7 kg

DRUGS (1)
  1. ATEZOLIZUMAB [Suspect]
     Active Substance: ATEZOLIZUMAB
     Indication: Hormone-refractory prostate cancer
     Dosage: END OF TREATMENT VISIT ON 20/JUL/2021?LAST DOSE DATE: 15/JUN/2021.
     Route: 041
     Dates: start: 20210615, end: 20210615

REACTIONS (4)
  - Blood creatinine increased [Recovered/Resolved]
  - Platelet count decreased [Recovered/Resolved]
  - Fatigue [Recovered/Resolved]
  - White blood cell count decreased [Recovered/Resolved]

NARRATIVE: CASE EVENT DATE: 20210701
